FAERS Safety Report 10990200 (Version 1)
Quarter: 2015Q1

REPORT INFORMATION
  Report Type: Spontaneous
  Country: US (occurrence: None)
  Receive Date: 20150226
  Receipt Date: 20150226
  Transmission Date: 20150721
  Serious: Yes (Other)
  Sender: FDA-Public Use
  Company Number: TPA2008A01062

PATIENT
  Age: 56 Year
  Sex: Male

DRUGS (7)
  1. GLUCOPHAGE [Concomitant]
     Active Substance: METFORMIN HYDROCHLORIDE
  2. PRANDIN (REPAGLINIDE) [Concomitant]
  3. STARLIX [Concomitant]
     Active Substance: NATEGLINIDE
  4. TOPROL XL [Concomitant]
     Active Substance: METOPROLOL SUCCINATE
  5. PROZAC [Concomitant]
     Active Substance: FLUOXETINE HYDROCHLORIDE
  6. ACTOS [Suspect]
     Active Substance: PIOGLITAZONE HYDROCHLORIDE
     Indication: TYPE 2 DIABETES MELLITUS
     Route: 048
     Dates: start: 2004
  7. VASOTEC (ENALAPRIL MALEATE) [Concomitant]

REACTIONS (2)
  - Rib fracture [None]
  - Wrist fracture [None]

NARRATIVE: CASE EVENT DATE: 2007
